FAERS Safety Report 6470304-X (Version None)
Quarter: 2009Q4

REPORT INFORMATION
  Report Type: 
  Country: None (occurrence: None)
  Receive Date: 20091203
  Receipt Date: 20091125
  Transmission Date: 20100525
  Serious: Yes (Other)
  Sender: FDA-Public Use
  Company Number: DE-JNJFOC-20091103089

PATIENT
  Sex: Male

DRUGS (5)
  1. SIMPONI [Suspect]
     Indication: ANKYLOSING SPONDYLITIS
     Route: 058
     Dates: start: 20091109, end: 20091109
  2. PARECOXIB SODIUM [Concomitant]
     Indication: PAIN
     Route: 042
  3. RAMIPRIL [Concomitant]
     Indication: HYPERTENSION
     Route: 048
  4. NEXIUM [Concomitant]
     Indication: GASTROINTESTINAL DISORDER THERAPY
     Route: 048
  5. FENISTIL [Concomitant]
     Indication: GASTROINTESTINAL DISORDER THERAPY
     Route: 048

REACTIONS (1)
  - ANAPHYLACTIC REACTION [None]
